FAERS Safety Report 19781405 (Version 2)
Quarter: 2021Q4

REPORT INFORMATION
  Report Type: Report from Study
  Country: US (occurrence: US)
  Receive Date: 20210902
  Receipt Date: 20211001
  Transmission Date: 20220303
  Serious: Yes (Death, Hospitalization, Other)
  Sender: FDA-Public Use
  Company Number: 2021A698993

PATIENT
  Age: 83 Year
  Sex: Female

DRUGS (1)
  1. LYNPARZA [Suspect]
     Active Substance: OLAPARIB
     Indication: Ovarian cancer
     Route: 048

REACTIONS (12)
  - Death [Fatal]
  - Urinary tract infection [Unknown]
  - Sepsis [Unknown]
  - Confusional state [Unknown]
  - Blood sodium abnormal [Unknown]
  - Cerebrovascular accident [Unknown]
  - Troponin increased [Unknown]
  - Atrial fibrillation [Unknown]
  - Hyponatraemia [Unknown]
  - COVID-19 [Unknown]
  - Oropharyngeal pain [Recovered/Resolved]
  - Metabolic encephalopathy [Unknown]
